FAERS Safety Report 16208689 (Version 3)
Quarter: 2021Q1

REPORT INFORMATION
  Report Type: Spontaneous
  Country: US (occurrence: US)
  Receive Date: 20190417
  Receipt Date: 20210122
  Transmission Date: 20210419
  Serious: Yes (Other)
  Sender: FDA-Public Use
  Company Number: US-GILEAD-2019-0402599

PATIENT
  Age: 29 Year
  Sex: Male

DRUGS (1)
  1. TRUVADA [Suspect]
     Active Substance: EMTRICITABINE\TENOFOVIR DISOPROXIL FUMARATE
     Indication: HIV INFECTION
     Dosage: UNK
     Route: 048
     Dates: start: 2008, end: 2011

REACTIONS (7)
  - Osteonecrosis [Recovered/Resolved]
  - Pain [Unknown]
  - Emotional distress [Unknown]
  - Economic problem [Unknown]
  - Osteonecrosis [Recovered/Resolved]
  - Osteonecrosis [Unknown]
  - Bone density decreased [Unknown]

NARRATIVE: CASE EVENT DATE: 20110723
